FAERS Safety Report 12968778 (Version 5)
Quarter: 2017Q1

REPORT INFORMATION
  Report Type: Report from Study
  Country: BR (occurrence: BR)
  Receive Date: 20161123
  Receipt Date: 20170111
  Transmission Date: 20170428
  Serious: No
  Sender: FDA-Public Use
  Company Number: BR-UCBSA-2016043862

PATIENT
  Age: 53 Year
  Sex: Female
  Weight: 67 kg

DRUGS (6)
  1. CERTOLIZUMAB PEGOL [Suspect]
     Active Substance: CERTOLIZUMAB PEGOL
     Dosage: 200 MG, EV 2 WEEKS(QOW)
     Dates: start: 20161114
  2. SALINE [Concomitant]
     Active Substance: SODIUM CHLORIDE
     Indication: PRODUCT USED FOR UNKNOWN INDICATION
     Dosage: UNK
     Route: 042
     Dates: start: 20161024, end: 20161027
  3. LUFTAL [Concomitant]
     Active Substance: DIMETHICONE
     Indication: FLATULENCE
     Dosage: 30 MG, ONCE DAILY (QD)
     Route: 048
     Dates: start: 20161025, end: 20161104
  4. MELOXICAM. [Concomitant]
     Active Substance: MELOXICAM
     Indication: PROPHYLAXIS
     Dosage: 15 MG, 2X/DAY (BID)
     Route: 048
     Dates: start: 20161109, end: 201611
  5. LISADOR [Concomitant]
     Active Substance: DIPYRONE\PROMETHAZINE HYDROCHLORIDE
     Indication: ANALGESIC THERAPY
     Dosage: 30 MG, ONCE DAILY (QD)
     Route: 048
     Dates: start: 20151025, end: 20161104
  6. CERTOLIZUMAB PEGOL [Suspect]
     Active Substance: CERTOLIZUMAB PEGOL
     Indication: RHEUMATOID ARTHRITIS
     Dosage: 200 MG, EV 2 WEEKS(QOW)
     Dates: start: 20161001, end: 20161001

REACTIONS (7)
  - Application site pain [Recovered/Resolved]
  - Application site hypersensitivity [Recovered/Resolved]
  - Hypoacusis [Not Recovered/Not Resolved]
  - Drug dose omission [Unknown]
  - Pruritus generalised [Recovered/Resolved]
  - Arthralgia [Not Recovered/Not Resolved]
  - Joint swelling [Not Recovered/Not Resolved]

NARRATIVE: CASE EVENT DATE: 20161001
